FAERS Safety Report 15710140 (Version 2)
Quarter: 2019Q1

REPORT INFORMATION
  Report Type: Spontaneous
  Country: ES (occurrence: ES)
  Receive Date: 20181211
  Receipt Date: 20190109
  Transmission Date: 20190417
  Serious: No
  Sender: FDA-Public Use
  Company Number: PHHY2018ES176374

PATIENT

DRUGS (1)
  1. SECUKINUMAB. [Suspect]
     Active Substance: SECUKINUMAB
     Indication: PRODUCT USED FOR UNKNOWN INDICATION
     Dosage: UNK
     Route: 065

REACTIONS (5)
  - Erythema nodosum [Recovering/Resolving]
  - Paradoxical drug reaction [Unknown]
  - Arthralgia [Recovering/Resolving]
  - Asthenia [Recovering/Resolving]
  - Discomfort [Recovering/Resolving]
